FAERS Safety Report 7486706-9 (Version None)
Quarter: 2011Q2

REPORT INFORMATION
  Report Type: 
  Country: None (occurrence: None)
  Receive Date: 20110517
  Receipt Date: 20100611
  Transmission Date: 20111010
  Serious: No
  Sender: FDA-Public Use
  Company Number: US-NOVEN-ALL1-2010-03386

PATIENT

DRUGS (3)
  1. DEPAKOTE [Concomitant]
     Dosage: 250 MG, 1X/DAY:QD
     Route: 048
  2. DAYTRANA [Suspect]
     Dosage: 30 MG, 1X/DAY:QD
     Route: 062
     Dates: start: 20070101
  3. RISPERDAL [Concomitant]
     Dosage: 1 MG, 1X/DAY:QD
     Route: 048

REACTIONS (3)
  - PRODUCT QUALITY ISSUE [None]
  - OFF LABEL USE [None]
  - PSYCHOMOTOR HYPERACTIVITY [None]
